FAERS Safety Report 7546803-6 (Version None)
Quarter: 2011Q2

REPORT INFORMATION
  Report Type: 
  Country: None (occurrence: None)
  Receive Date: 20110607
  Receipt Date: 20110523
  Transmission Date: 20111010
  Serious: Yes (Life-Threatening, Hospitalization, Other)
  Sender: FDA-Public Use
  Company Number: 2010002279

PATIENT
  Age: 77 Year
  Sex: Male

DRUGS (13)
  1. FLUITRAN (TRICHLORMETHIAZIDE) [Concomitant]
  2. ARICEPT [Concomitant]
  3. ASPIRIN [Concomitant]
  4. ACTOS (PRIOGLITAZONE HYDROCHLORIDE) [Concomitant]
  5. GLUCOBAY [Concomitant]
  6. ALDACTONE [Suspect]
  7. AMARYL [Concomitant]
  8. MYSLEE (ZOLPIDEM TARTRATE) [Concomitant]
  9. ERLOTINIB HYDROCHLORIDE [Suspect]
     Indication: LUNG NEOPLASM MALIGNANT
     Dosage: 150 MG, UID/QD, ORAL
     Route: 048
     Dates: start: 20100526, end: 20100527
  10. NORVASC [Concomitant]
  11. GRANDAXIN (TOFISOPAM) [Concomitant]
  12. PRORENAL (LIMAPROST) [Concomitant]
  13. CEROCRAL (IFENPRODIL TARTRATE) [Concomitant]

REACTIONS (9)
  - VENTRICULAR TACHYCARDIA [None]
  - RED BLOOD CELL COUNT DECREASED [None]
  - PERICARDIAL EFFUSION [None]
  - URINARY RETENTION [None]
  - RENAL FAILURE ACUTE [None]
  - CARDIAC TAMPONADE [None]
  - PLEURAL EFFUSION [None]
  - CONTINUOUS HAEMODIAFILTRATION [None]
  - HAEMOGLOBIN DECREASED [None]
